FAERS Safety Report 4310555-3 (Version None)
Quarter: 2004Q1

REPORT INFORMATION
  Report Type: 
  Country: None (occurrence: None)
  Receive Date: 20040303
  Receipt Date: 20040219
  Transmission Date: 20041129
  Serious: Yes (Other)
  Sender: FDA-Public Use
  Company Number: GB-GLAXOSMITHKLINE-B0323943A

PATIENT
  Sex: Female

DRUGS (2)
  1. LAMICTAL [Suspect]
     Indication: BIPOLAR DISORDER
     Dates: start: 20020101
  2. VENLAFAXINE HCL [Concomitant]

REACTIONS (3)
  - CONDITION AGGRAVATED [None]
  - PULMONARY FIBROSIS [None]
  - PULMONARY SARCOIDOSIS [None]
